FAERS Safety Report 14969564 (Version 1)
Quarter: 2018Q2

REPORT INFORMATION
  Report Type: Spontaneous
  Country: FR (occurrence: FR)
  Receive Date: 20180604
  Receipt Date: 20180604
  Transmission Date: 20180711
  Serious: Yes (Hospitalization)
  Sender: FDA-Public Use
  Company Number: FR-JNJFOC-20180541720

PATIENT
  Age: 89 Year
  Sex: Female

DRUGS (8)
  1. LORMETAZEPAM [Suspect]
     Active Substance: LORMETAZEPAM
     Indication: SLEEP DISORDER
     Route: 048
  2. ACIDE FOLIQUE [Concomitant]
     Active Substance: FOLIC ACID
     Route: 048
  3. MIRTAZAPINE. [Suspect]
     Active Substance: MIRTAZAPINE
     Indication: DEPRESSION
     Route: 048
  4. KARDEGIC [Concomitant]
     Active Substance: ASPIRIN DL-LYSINE
     Indication: CEREBROVASCULAR ACCIDENT PROPHYLAXIS
     Route: 048
  5. SERESTA [Suspect]
     Active Substance: OXAZEPAM
     Indication: DEPRESSION
     Route: 048
  6. BISOPROLOL [Concomitant]
     Active Substance: BISOPROLOL
     Indication: HYPERTENSION
     Route: 048
  7. DUROGESIC [Suspect]
     Active Substance: FENTANYL
     Indication: PAIN
     Route: 062
     Dates: start: 20180301, end: 20180302
  8. SERESTA [Suspect]
     Active Substance: OXAZEPAM
     Indication: DEPRESSION
     Route: 048

REACTIONS (2)
  - Aggression [Recovered/Resolved]
  - Confusional state [Recovered/Resolved]

NARRATIVE: CASE EVENT DATE: 20180302
